FAERS Safety Report 6987828-9 (Version None)
Quarter: 2010Q3

REPORT INFORMATION
  Report Type: 
  Country: None (occurrence: None)
  Receive Date: 20100914
  Receipt Date: 20100903
  Transmission Date: 20110219
  Serious: Yes (Disabling)
  Sender: FDA-Public Use
  Company Number: 2010JP004744

PATIENT
  Age: 61 Year
  Sex: Female
  Weight: 48 kg

DRUGS (12)
  1. VESICARE (SOLIFENACIN) TABLET, 5MG [Suspect]
     Indication: HYPERTONIC BLADDER
     Dosage: 5 MG, UID/QD, ORAL
     Route: 048
     Dates: start: 20100208, end: 20100607
  2. FLOMOX (CEFCAPENE PIVOXIL HYDROCHLORIDE) TABLET [Suspect]
     Dosage: ORAL, 100 MG, TID, ORAL, 100 MG, TID, ORAL, 100 MG, TID, ORAL, 100 MG, TID, ORAL
     Route: 048
     Dates: start: 20100215, end: 20100222
  3. FLOMOX (CEFCAPENE PIVOXIL HYDROCHLORIDE) TABLET [Suspect]
     Dosage: ORAL, 100 MG, TID, ORAL, 100 MG, TID, ORAL, 100 MG, TID, ORAL, 100 MG, TID, ORAL
     Route: 048
     Dates: end: 20100226
  4. FLOMOX (CEFCAPENE PIVOXIL HYDROCHLORIDE) TABLET [Suspect]
     Dosage: ORAL, 100 MG, TID, ORAL, 100 MG, TID, ORAL, 100 MG, TID, ORAL, 100 MG, TID, ORAL
     Route: 048
     Dates: start: 20100518, end: 20100527
  5. FLOMOX (CEFCAPENE PIVOXIL HYDROCHLORIDE) TABLET [Suspect]
     Dosage: ORAL, 100 MG, TID, ORAL, 100 MG, TID, ORAL, 100 MG, TID, ORAL, 100 MG, TID, ORAL
     Route: 048
     Dates: start: 20100528, end: 20100603
  6. DIOVAN [Concomitant]
  7. ATELEC (CILNIDIPINE) [Concomitant]
  8. LOXOMARIN (LOXOPROFEN SODIUM) [Concomitant]
  9. SOLON (SOFALCONE) [Concomitant]
  10. YOUCOBAL (MECOBALAMIN) [Concomitant]
  11. MENESIT (CARBIDOPA, LEVODOPA) [Concomitant]
  12. LOLLARM (FLAVOXATE HYDROCHLORIDE) [Concomitant]

REACTIONS (1)
  - LIVER DISORDER [None]
